FAERS Safety Report 5746771-3 (Version None)
Quarter: 2008Q2

REPORT INFORMATION
  Report Type: 
  Country: None (occurrence: None)
  Receive Date: 20080522
  Receipt Date: 20080513
  Transmission Date: 20081010
  Serious: Yes (Other)
  Sender: FDA-Public Use
  Company Number: NO-PFIZER INC-2008024740

PATIENT
  Age: 76 Year
  Sex: Male

DRUGS (1)
  1. ZOLOFT [Suspect]
     Indication: DEPRESSION
     Dosage: DAILY DOSE:150MG-FREQ:DAILY
     Route: 048

REACTIONS (5)
  - ANXIETY [None]
  - BLOOD URINE PRESENT [None]
  - HAEMORRHOIDS [None]
  - PENIS INJURY [None]
  - RECTAL HAEMORRHAGE [None]
